FAERS Safety Report 9264191 (Version 3)
Quarter: 2013Q3

REPORT INFORMATION
  Report Type: Spontaneous
  Country: CA (occurrence: CA)
  Receive Date: 20130430
  Receipt Date: 20130802
  Transmission Date: 20140515
  Serious: Yes (Hospitalization)
  Sender: FDA-Public Use
  Company Number: CA-PFIZER INC-2013118203

PATIENT
  Age: 48 Year
  Sex: Female

DRUGS (15)
  1. ENBREL [Suspect]
     Indication: RHEUMATOID ARTHRITIS
     Dosage: 50 MG, UNK
     Dates: start: 20110209
  2. CLINDAMYCIN HCL [Suspect]
     Indication: ANTIBIOTIC PROPHYLAXIS
     Dosage: UNK
     Route: 048
     Dates: start: 201301
  3. MTX [Concomitant]
     Dosage: 15 MG, QWK
  4. APO HYDROXYQUINE [Concomitant]
     Dosage: 200 MG, QWK
  5. CELEBREX [Concomitant]
     Dosage: 200 MG, QD
  6. FERROUS FUMARATE [Concomitant]
     Dosage: 300 MG 1 TABLET 3X PER DAY
  7. BACLOFEN [Concomitant]
     Dosage: 10 MG 1 TABLET 3X PER DAY
  8. OMEPRAZOLE [Concomitant]
     Dosage: 20 MG 1 TABLET DAILY
  9. FOLIC ACID [Concomitant]
     Dosage: UNK
  10. VITAMIN B3 [Concomitant]
     Dosage: UNK
  11. VITAMIN E [Concomitant]
     Dosage: UNK
  12. CALCIUM [Concomitant]
     Dosage: UNK
  13. MAGNESIUM [Concomitant]
     Dosage: UNK
  14. ACUFLEX [Concomitant]
     Dosage: UNK
  15. TYLENOL 3 [Concomitant]

REACTIONS (7)
  - Arthropathy [Recovered/Resolved]
  - Hip deformity [Recovering/Resolving]
  - Fall [Recovering/Resolving]
  - Vomiting [Recovered/Resolved]
  - Tendon disorder [Not Recovered/Not Resolved]
  - Ligament disorder [Not Recovered/Not Resolved]
  - Pain [Not Recovered/Not Resolved]
